FAERS Safety Report 18440269 (Version 1)
Quarter: 2020Q4

REPORT INFORMATION
  Report Type: Spontaneous
  Country: CN (occurrence: CN)
  Receive Date: 20201029
  Receipt Date: 20201029
  Transmission Date: 20210114
  Serious: Yes (Other)
  Sender: FDA-Public Use
  Company Number: CN-SUN PHARMACEUTICAL INDUSTRIES LTD-2020R1-265629

PATIENT
  Age: 67 Year
  Sex: Male

DRUGS (1)
  1. GEMCITABINE. [Suspect]
     Active Substance: GEMCITABINE
     Indication: TRANSITIONAL CELL CARCINOMA
     Dosage: UNK (1.0 G PER 1.75 M2 EVERY 2 WK; 30 CYCLES)
     Route: 043

REACTIONS (1)
  - Acute lung injury [Recovered/Resolved]
